FAERS Safety Report 16406738 (Version 4)
Quarter: 2020Q1

REPORT INFORMATION
  Report Type: Report from Study
  Country: DE (occurrence: DE)
  Receive Date: 20190607
  Receipt Date: 20200217
  Transmission Date: 20200409
  Serious: Yes (Life-Threatening, Other)
  Sender: FDA-Public Use
  Company Number: PHHY2019DE128613

PATIENT
  Age: 50 Year
  Sex: Female
  Weight: 65 kg

DRUGS (10)
  1. EUTHYROX [Concomitant]
     Active Substance: LEVOTHYROXINE SODIUM
     Indication: PRODUCT USED FOR UNKNOWN INDICATION
     Route: 065
  2. TAVOR [Concomitant]
     Indication: MALIGNANT MELANOMA
     Dosage: 1 MG, ON DEMAND
     Route: 065
     Dates: start: 20190814
  3. PANTOZOL [Concomitant]
     Active Substance: PANTOPRAZOLE SODIUM
     Indication: PRODUCT USED FOR UNKNOWN INDICATION
     Dosage: 40 MG, QD
     Route: 065
     Dates: start: 20180429
  4. L THYROXIN [Concomitant]
     Active Substance: LEVOTHYROXINE SODIUM
     Indication: PRODUCT USED FOR UNKNOWN INDICATION
     Dosage: 112 UG, QD
     Route: 065
     Dates: start: 2007
  5. TAFINLAR [Suspect]
     Active Substance: DABRAFENIB MESYLATE
     Indication: METASTATIC MALIGNANT MELANOMA
     Dosage: 150 MG, BID
     Route: 048
     Dates: start: 20180509, end: 20180517
  6. TAFINLAR [Suspect]
     Active Substance: DABRAFENIB MESYLATE
     Dosage: 150 MG, BID
     Route: 065
     Dates: start: 20180518, end: 20190418
  7. TRAMETINIB [Suspect]
     Active Substance: TRAMETINIB
     Indication: METASTATIC MALIGNANT MELANOMA
     Dosage: 2 MG, QD
     Route: 048
     Dates: start: 20180516, end: 20190418
  8. TRAMETINIB [Suspect]
     Active Substance: TRAMETINIB
     Dosage: 2 MG, QD
     Route: 048
     Dates: start: 20190425, end: 20191206
  9. TAFINLAR [Suspect]
     Active Substance: DABRAFENIB MESYLATE
     Dosage: 150 MG, BID
     Route: 048
     Dates: start: 20190425, end: 20191206
  10. PANTOPRAZOL [Concomitant]
     Active Substance: PANTOPRAZOLE SODIUM
     Indication: PRODUCT USED FOR UNKNOWN INDICATION
     Route: 065

REACTIONS (3)
  - Hepatic enzyme increased [Recovered/Resolved]
  - Fatigue [Not Recovered/Not Resolved]
  - Nail bed inflammation [Recovered/Resolved]

NARRATIVE: CASE EVENT DATE: 20190401
